FAERS Safety Report 9363220 (Version 2)
Quarter: 2013Q3

REPORT INFORMATION
  Report Type: Report from Study
  Country: US (occurrence: US)
  Receive Date: 20130624
  Receipt Date: 20130702
  Transmission Date: 20140515
  Serious: Yes (Hospitalization)
  Sender: FDA-Public Use
  Company Number: US-BIOGENIDEC-2013BI055096

PATIENT
  Age: 49 Year
  Sex: Female

DRUGS (17)
  1. TYSABRI [Suspect]
     Indication: MULTIPLE SCLEROSIS
     Route: 042
     Dates: start: 20081006, end: 20120926
  2. TYSABRI [Suspect]
     Indication: MULTIPLE SCLEROSIS
     Route: 042
     Dates: start: 20130215
  3. ASPIRIN [Concomitant]
  4. CALCIUM CARBONATE [Concomitant]
  5. CRANBERRY [Concomitant]
  6. DANTROLENE [Concomitant]
  7. COLACE [Concomitant]
  8. GABAPENTIN [Concomitant]
  9. OMEPRAZOLE [Concomitant]
  10. OXYBUTYNIN [Concomitant]
  11. PYRIDIUM [Concomitant]
  12. ZOLOFT [Concomitant]
  13. VITAMIN C [Concomitant]
  14. TYLENOL [Concomitant]
  15. DULCOLAX [Concomitant]
  16. BENADRYL [Concomitant]
  17. FLEETS ENEMA [Concomitant]

REACTIONS (2)
  - Neurogenic bladder [Recovered/Resolved]
  - Ileus [Recovered/Resolved]
